FAERS Safety Report 11776896 (Version 3)
Quarter: 2015Q4

REPORT INFORMATION
  Report Type: Spontaneous
  Country: DK (occurrence: DK)
  Receive Date: 20151125
  Receipt Date: 20151209
  Transmission Date: 20160304
  Serious: Yes (Hospitalization)
  Sender: FDA-Public Use
  Company Number: DK-WATSON-2015-25447

PATIENT
  Sex: Female
  Weight: 52 kg

DRUGS (8)
  1. SELEXID                            /00445301/ [Suspect]
     Active Substance: AMDINOCILLIN PIVOXIL HYDROCHLORIDE
     Indication: CYSTITIS
     Dosage: UNK UNK, UNKNOWN
     Route: 048
     Dates: start: 2009
  2. CIPROFLOXACIN. [Suspect]
     Active Substance: CIPROFLOXACIN
     Indication: CYSTITIS
     Dosage: UNK UNK, UNKNOWN
     Route: 048
     Dates: start: 2009
  3. SULFAMETIZOL ACTAVIS [Suspect]
     Active Substance: SULFAMETHIZOLE
     Indication: CYSTITIS
     Dosage: UNK UNK, UNKNOWN
     Route: 048
     Dates: start: 2009
  4. PENOMAX [Suspect]
     Active Substance: AMDINOCILLIN PIVOXIL HYDROCHLORIDE
     Indication: CYSTITIS
     Dosage: UNK UNK, UNKNOWN
     Route: 048
     Dates: start: 2009
  5. NITROFURANTOIN ^DAK^ [Suspect]
     Active Substance: NITROFURANTOIN
     Indication: CYSTITIS
     Dosage: UNK UNK, UNKNOWN
     Route: 048
     Dates: start: 2009
  6. TRIMOPAN                           /00158501/ [Suspect]
     Active Substance: TRIMETHOPRIM
     Indication: CYSTITIS
     Dosage: UNK UNK, UNKNOWN
     Route: 048
     Dates: start: 2009
  7. MORFIN                             /00036303/ [Concomitant]
     Indication: PRODUCT USED FOR UNKNOWN INDICATION
     Dosage: UNK, UNKNOWN
     Route: 065
  8. BETMIGA [Concomitant]
     Active Substance: MIRABEGRON
     Indication: HYPERTONIC BLADDER
     Dosage: UNK, UNKNOWN
     Route: 065

REACTIONS (4)
  - Bladder pain [Not Recovered/Not Resolved]
  - Cystitis [Not Recovered/Not Resolved]
  - Menstruation irregular [Not Recovered/Not Resolved]
  - Urethritis noninfective [Not Recovered/Not Resolved]

NARRATIVE: CASE EVENT DATE: 2009
